FAERS Safety Report 21109868 (Version 2)
Quarter: 2022Q3

REPORT INFORMATION
  Report Type: Report from Study
  Country: BR (occurrence: BR)
  Receive Date: 20220721
  Receipt Date: 20220723
  Transmission Date: 20221027
  Serious: Yes (Hospitalization)
  Sender: FDA-Public Use
  Company Number: BR-UCBSA-2022040151

PATIENT
  Age: 85 Year
  Sex: Female
  Weight: 54 kg

DRUGS (10)
  1. CERTOLIZUMAB PEGOL [Suspect]
     Active Substance: CERTOLIZUMAB PEGOL
     Indication: Rheumatoid arthritis
     Dosage: 200 MILLIGRAM, EV 2 WEEKS(QOW)
     Route: 058
  2. OMEPRAZOLE SODIUM [Concomitant]
     Active Substance: OMEPRAZOLE SODIUM
     Indication: Gastric disorder
     Dosage: 1 DOSAGE FORM, ONCE DAILY (QD), APPROXIMATELY 3 YEARS
     Route: 048
  3. METFORMIN HYDROCHLORIDE\VILDAGLIPTIN [Concomitant]
     Active Substance: METFORMIN HYDROCHLORIDE\VILDAGLIPTIN
     Indication: Diabetes mellitus
     Dosage: 1 DOSAGE FORM, ONCE DAILY (QD)
     Route: 048
  4. GALANTAMINA [GALANTAMINE] [Concomitant]
     Indication: Dementia Alzheimer^s type
     Dosage: 0.5 DOSAGE FORM, MORE THAN 10 YEARS
     Route: 048
  5. PREDNISOLONE [Concomitant]
     Active Substance: PREDNISOLONE
     Indication: Rheumatoid arthritis
     Dosage: 5 MILLIGRAM, ONCE DAILY (QD), SINCE 15 YEARS
     Route: 048
     Dates: start: 2007
  6. ASPIRIN [Concomitant]
     Active Substance: ASPIRIN
     Indication: Pneumonia
     Dosage: 1 DOSAGE FORM, ONCE DAILY (QD)
     Route: 048
  7. GLICLAZIDE [Concomitant]
     Active Substance: GLICLAZIDE
     Indication: Diabetes mellitus
     Dosage: 1 DOSAGE FORM, ONCE DAILY (QD)
     Route: 048
  8. RISPERIDONE [Concomitant]
     Active Substance: RISPERIDONE
     Indication: Dementia Alzheimer^s type
     Dosage: 1 MILLIGRAM, ONCE DAILY (QD)
     Route: 048
  9. CILOSTAZOL [Concomitant]
     Active Substance: CILOSTAZOL
     Indication: Dementia Alzheimer^s type
     Dosage: 1 DOSAGE FORM, ONCE DAILY (QD), MORE THAN 10 YEARS
     Route: 048
  10. QUETIAPINE [Concomitant]
     Active Substance: QUETIAPINE
     Indication: Dementia Alzheimer^s type
     Dosage: 1 DOSAGE FORM, ONCE DAILY (QD), MORE THAN 10 YEARS
     Route: 048

REACTIONS (4)
  - Pneumonia [Recovered/Resolved]
  - Limb deformity [Not Recovered/Not Resolved]
  - Product distribution issue [Unknown]
  - Therapy interrupted [Unknown]

NARRATIVE: CASE EVENT DATE: 20220601
